FAERS Safety Report 18534321 (Version 2)
Quarter: 2020Q4

REPORT INFORMATION
  Report Type: Spontaneous
  Country: SI (occurrence: SI)
  Receive Date: 20201123
  Receipt Date: 20201204
  Transmission Date: 20210114
  Serious: Yes (Other)
  Sender: FDA-Public Use
  Company Number: SI-VERTEX PHARMACEUTICALS-2020-022695

PATIENT
  Age: 33 Year
  Sex: Male

DRUGS (4)
  1. KAFTRIO [Suspect]
     Active Substance: ELEXACAFTOR\IVACAFTOR\TEZACAFTOR
     Indication: CYSTIC FIBROSIS
     Dosage: 2 TABLETS IN THE MORNING
     Route: 048
     Dates: start: 20200824, end: 202009
  2. KALYDECO [Suspect]
     Active Substance: IVACAFTOR
     Indication: CYSTIC FIBROSIS
     Dosage: 1 TABLET IN THE EVENING
     Route: 048
     Dates: start: 20200824, end: 202009
  3. KAFTRIO [Suspect]
     Active Substance: ELEXACAFTOR\IVACAFTOR\TEZACAFTOR
     Dosage: 2 TABLETS IN THE MORNING
     Route: 048
     Dates: start: 20200917
  4. KALYDECO [Suspect]
     Active Substance: IVACAFTOR
     Dosage: NO TABLET IN EVENING
     Route: 048
     Dates: start: 20200917

REACTIONS (5)
  - Hepatic function abnormal [Recovering/Resolving]
  - Diarrhoea [Recovered/Resolved]
  - Asthenopia [Recovered/Resolved]
  - Sputum increased [Recovered/Resolved]
  - Chest pain [Recovered/Resolved]

NARRATIVE: CASE EVENT DATE: 202008
